FAERS Safety Report 9899528 (Version 2)
Quarter: 2014Q1

REPORT INFORMATION
  Report Type: Report from Study
  Country: CA (occurrence: CA)
  Receive Date: 20140214
  Receipt Date: 20140226
  Transmission Date: 20141002
  Serious: Yes (Death)
  Sender: FDA-Public Use
  Company Number: CA-ALLERGAN-1402940US

PATIENT
  Age: 69 Year
  Sex: Male

DRUGS (2)
  1. BOTULINUM TOXIN TYPE A - GENERAL (9060X) [Suspect]
     Indication: FACIAL SPASM
     Dosage: UNK UNK, SINGLE
     Route: 030
     Dates: start: 20090910, end: 20090910
  2. BOTULINUM TOXIN TYPE A - GENERAL (9060X) [Suspect]
     Dosage: UNK UNK, SINGLE
     Route: 030
     Dates: start: 20071004, end: 20071004

REACTIONS (1)
  - Small intestinal obstruction [Fatal]
